FAERS Safety Report 24195146 (Version 1)
Quarter: 2024Q3

REPORT INFORMATION
  Report Type: Spontaneous
  Country: US (occurrence: None)
  Receive Date: 20240809
  Receipt Date: 20240809
  Transmission Date: 20241017
  Serious: Yes (Other)
  Sender: ASTRAZENECA
  Company Number: 2024A170416

PATIENT
  Age: 61 Year
  Sex: Female
  Weight: 74.7 kg

DRUGS (6)
  1. TRUQAP [Suspect]
     Active Substance: CAPIVASERTIB
     Indication: Breast cancer female
     Route: 048
  2. FULVESTRANT [Suspect]
     Active Substance: FULVESTRANT
     Dosage: UNKNOWN
     Route: 030
  3. AFINITOR [Concomitant]
     Active Substance: EVEROLIMUS
  4. LANTUS [Concomitant]
     Active Substance: INSULIN GLARGINE
     Dosage: INJECT 15 UNITS INTO THE SKIN EVERY EVENING
  5. METFORMIN [Concomitant]
     Active Substance: METFORMIN HYDROCHLORIDE
  6. JARDIANCE [Concomitant]
     Active Substance: EMPAGLIFLOZIN

REACTIONS (4)
  - Pneumonitis [Unknown]
  - Blood glucose increased [Unknown]
  - Type 2 diabetes mellitus [Unknown]
  - Body mass index increased [Unknown]
